FAERS Safety Report 23648866 (Version 2)
Quarter: 2024Q2

REPORT INFORMATION
  Report Type: Report from Study
  Country: JP (occurrence: JP)
  Receive Date: 20240319
  Receipt Date: 20240619
  Transmission Date: 20240716
  Serious: Yes (Hospitalization, Other)
  Sender: FDA-Public Use
  Company Number: JP-GENMAB-2024-00821

PATIENT
  Age: 77 Year
  Sex: Male
  Weight: 58.5 kg

DRUGS (6)
  1. EPKINLY [Suspect]
     Active Substance: EPCORITAMAB-BYSP
     Indication: Diffuse large B-cell lymphoma refractory
     Dosage: 0.16 MILLIGRAM, SINGLE
     Route: 058
     Dates: start: 20231212, end: 20231212
  2. EPKINLY [Suspect]
     Active Substance: EPCORITAMAB-BYSP
     Dosage: 0.8 MILLIGRAM, SINGLE
     Route: 058
     Dates: start: 20231219, end: 20231219
  3. EPKINLY [Suspect]
     Active Substance: EPCORITAMAB-BYSP
     Dosage: 48 MILLIGRAM
     Route: 058
     Dates: start: 20231226, end: 20240102
  4. CORTICOTROPIN [Concomitant]
     Active Substance: CORTICOTROPIN
     Indication: Prophylaxis
     Dosage: UNK, ON DAY1 OF EPKINLY
     Dates: start: 20231212, end: 20240102
  5. ANTIHISTAMINES NOS [Concomitant]
     Active Substance: ANTIHISTAMINES NOS
     Indication: Prophylaxis
     Dosage: UNK, ON DAY1 OF EPKINLY
     Dates: start: 20231212, end: 20240102
  6. UNSPECIFIED INGREDIENT [Concomitant]
     Active Substance: UNSPECIFIED INGREDIENT
     Indication: Prophylaxis
     Dosage: UNK, ON DAY1 OF EPKINLY
     Dates: start: 20231212, end: 20240102

REACTIONS (1)
  - Diffuse large B-cell lymphoma refractory [Not Recovered/Not Resolved]

NARRATIVE: CASE EVENT DATE: 20231231
